FAERS Safety Report 5821624-0 (Version None)
Quarter: 2008Q3

REPORT INFORMATION
  Report Type: 
  Country: None (occurrence: None)
  Receive Date: 20080722
  Receipt Date: 20080709
  Transmission Date: 20090109
  Serious: Yes (Hospitalization)
  Sender: FDA-Public Use
  Company Number: WAES 0803USA03145

PATIENT
  Age: 71 Year
  Sex: Female
  Weight: 68.9467 kg

DRUGS (28)
  1. CAP VORINOSTAT [Suspect]
     Indication: ACUTE MYELOID LEUKAEMIA
     Dosage: 400 MG/DAILY; PO,
     Route: 048
     Dates: start: 20080410, end: 20080423
  2. CAP VORINOSTAT [Suspect]
     Indication: MYELODYSPLASTIC SYNDROME
     Dosage: 400 MG/DAILY; PO,
     Route: 048
     Dates: start: 20080410, end: 20080423
  3. CAP VORINOSTAT [Suspect]
     Indication: ACUTE MYELOID LEUKAEMIA
     Dosage: 400 MG/DAILY; PO,
     Route: 048
     Dates: start: 20080510, end: 20080523
  4. CAP VORINOSTAT [Suspect]
     Indication: MYELODYSPLASTIC SYNDROME
     Dosage: 400 MG/DAILY; PO,
     Route: 048
     Dates: start: 20080510, end: 20080523
  5. DOXYCYCLINE HCL [Suspect]
     Indication: ROSACEA
     Dosage: 50 MG, BID; PO
     Route: 048
     Dates: start: 20080307, end: 20080317
  6. GEMFIBROZIL [Suspect]
     Indication: HYPERLIPIDAEMIA
     Dosage: 600 MG/BID; PO
     Route: 048
     Dates: start: 20070301, end: 20070317
  7. INFUSION (FORM) DECITABINE [Suspect]
     Indication: ACUTE MYELOID LEUKAEMIA
     Dosage: 35 MG, DAILY, IV,
     Route: 042
     Dates: start: 20080308, end: 20080312
  8. INFUSION (FORM) DECITABINE [Suspect]
     Indication: MYELODYSPLASTIC SYNDROME
     Dosage: 35 MG, DAILY, IV,
     Route: 042
     Dates: start: 20080308, end: 20080312
  9. INFUSION (FORM) DECITABINE [Suspect]
     Indication: ACUTE MYELOID LEUKAEMIA
     Dosage: 35 MG, DAILY, IV,
     Route: 042
     Dates: start: 20080405, end: 20080409
  10. INFUSION (FORM) DECITABINE [Suspect]
     Indication: MYELODYSPLASTIC SYNDROME
     Dosage: 35 MG, DAILY, IV,
     Route: 042
     Dates: start: 20080405, end: 20080409
  11. INFUSION (FORM) DECITABINE [Suspect]
     Indication: ACUTE MYELOID LEUKAEMIA
     Dosage: 35 MG, DAILY, IV,
     Route: 042
     Dates: start: 20080505, end: 20080507
  12. INFUSION (FORM) DECITABINE [Suspect]
     Indication: MYELODYSPLASTIC SYNDROME
     Dosage: 35 MG, DAILY, IV,
     Route: 042
     Dates: start: 20080505, end: 20080507
  13. BISOPROLOL FUMARATE AND HYDROCHLOROTHIAZIDE [Suspect]
     Indication: HYPERTENSION
     Dosage: 2.6 MG, DAILY; PO
     Route: 048
     Dates: start: 20080301, end: 20080317
  14. AVELOX [Suspect]
     Indication: ANTIBIOTIC PROPHYLAXIS
     Dosage: 400 MG, DAILY; PO
     Route: 048
     Dates: start: 20080314, end: 20080317
  15. LOTEMAX [Concomitant]
  16. ACETAMINOPHEN [Concomitant]
  17. ALLOPURINOL [Concomitant]
  18. CALCIUM+ VITAMIN [Concomitant]
  19. DIPHENHYDRAMINE HYDROCHLORIDE [Concomitant]
  20. DOCUSATE SODIUM [Concomitant]
  21. HYDROXYUREA [Concomitant]
  22. LORAZEPAM [Concomitant]
  23. OMEGA-3 MARINE TRIGLYCERIDES [Concomitant]
  24. OMEPRAZOLE [Concomitant]
  25. ONDANSETRON [Concomitant]
  26. OXYCODONE HCL [Concomitant]
  27. PAROXETINE HCL [Concomitant]
  28. POTASSIUM CHLORIDE [Concomitant]

REACTIONS (7)
  - ASTHENIA [None]
  - BUNDLE BRANCH BLOCK [None]
  - BUNDLE BRANCH BLOCK RIGHT [None]
  - NAUSEA [None]
  - SYNCOPE VASOVAGAL [None]
  - UROGRAM ABNORMAL [None]
  - VOMITING [None]
